FAERS Safety Report 25807689 (Version 1)
Quarter: 2025Q3

REPORT INFORMATION
  Report Type: Spontaneous
  Country: US (occurrence: US)
  Receive Date: 20250916
  Receipt Date: 20250916
  Transmission Date: 20251021
  Serious: No
  Sender: VERTEX
  Company Number: US-VERTEX PHARMACEUTICALS-2025-014869

PATIENT
  Age: 78 Year
  Sex: Female

DRUGS (3)
  1. SUZETRIGINE [Suspect]
     Active Substance: SUZETRIGINE
     Indication: Back pain
     Route: 048
     Dates: start: 20250803, end: 20250908
  2. SUZETRIGINE [Suspect]
     Active Substance: SUZETRIGINE
     Indication: Intervertebral disc protrusion
  3. SUZETRIGINE [Suspect]
     Active Substance: SUZETRIGINE
     Indication: Fibromyalgia

REACTIONS (5)
  - Blood pressure increased [Not Recovered/Not Resolved]
  - Erythema [Not Recovered/Not Resolved]
  - Urinary tract infection [Unknown]
  - Kidney infection [Unknown]
  - Off label use [Unknown]

NARRATIVE: CASE EVENT DATE: 20250101
